FAERS Safety Report 22602693 (Version 1)
Quarter: 2023Q2

REPORT INFORMATION
  Report Type: Spontaneous
  Country: PT (occurrence: PT)
  Receive Date: 20230615
  Receipt Date: 20230615
  Transmission Date: 20230722
  Serious: Yes (Other)
  Sender: FDA-Public Use
  Company Number: None

PATIENT
  Age: 49 Year
  Sex: Male
  Weight: 70 kg

DRUGS (5)
  1. TECFIDERA [Suspect]
     Active Substance: DIMETHYL FUMARATE
     Indication: Multiple sclerosis
     Route: 050
  2. TECFIDERA [Suspect]
     Active Substance: DIMETHYL FUMARATE
     Indication: Multiple sclerosis
     Dosage: 240 MG
     Route: 050
     Dates: start: 20230330
  3. Vigantol [Concomitant]
     Indication: Product used for unknown indication
     Dosage: 0.5 MILLIGRAM PER MILLILITRE
     Route: 050
  4. TRAZODONE HYDROCHLORIDE [Concomitant]
     Active Substance: TRAZODONE HYDROCHLORIDE
     Indication: Product used for unknown indication
     Dosage: 100MG
     Route: 050
  5. ATORVASTATIN [Concomitant]
     Active Substance: ATORVASTATIN
     Indication: Product used for unknown indication
     Route: 050

REACTIONS (3)
  - Product substitution issue [Unknown]
  - Arthralgia [Recovered/Resolved with Sequelae]
  - Flushing [Recovered/Resolved with Sequelae]

NARRATIVE: CASE EVENT DATE: 20230402
